FAERS Safety Report 16401726 (Version 1)
Quarter: 2019Q2

REPORT INFORMATION
  Report Type: Spontaneous
  Country: US (occurrence: US)
  Receive Date: 20190606
  Receipt Date: 20190606
  Transmission Date: 20190711
  Serious: Yes (Life-Threatening, Hospitalization, Other)
  Sender: FDA-Public Use
  Company Number: US-BAXTER-2019BAX010824

PATIENT
  Age: 75 Year
  Sex: Female

DRUGS (8)
  1. METRONIDAZOLE INJECTION, USP [Suspect]
     Active Substance: METRONIDAZOLE
     Indication: ABDOMINAL ABSCESS
  2. CIPROFLOXACIN INJECTION, USP [Suspect]
     Active Substance: CIPROFLOXACIN
     Indication: ANTIBIOTIC THERAPY
  3. METRONIDAZOLE INJECTION, USP [Suspect]
     Active Substance: METRONIDAZOLE
     Indication: DIVERTICULITIS
     Route: 065
  4. CIPROFLOXACIN INJECTION, USP [Suspect]
     Active Substance: CIPROFLOXACIN
     Indication: DIVERTICULITIS
     Route: 065
  5. CIPROFLOXACIN INJECTION, USP [Suspect]
     Active Substance: CIPROFLOXACIN
     Indication: ABDOMINAL ABSCESS
  6. METRONIDAZOLE INJECTION, USP [Suspect]
     Active Substance: METRONIDAZOLE
     Indication: ANTIBIOTIC THERAPY
  7. AZTREONAM. [Suspect]
     Active Substance: AZTREONAM
     Indication: ANTIBIOTIC THERAPY
     Route: 065
  8. VANCOMYCIN INJECTION, USP [Suspect]
     Active Substance: VANCOMYCIN
     Indication: EVIDENCE BASED TREATMENT
     Route: 065

REACTIONS (1)
  - Posterior reversible encephalopathy syndrome [Recovered/Resolved]
